FAERS Safety Report 10214542 (Version 2)
Quarter: 2014Q2

REPORT INFORMATION
  Report Type: Spontaneous
  Country: US (occurrence: US)
  Receive Date: 20140603
  Receipt Date: 20140604
  Transmission Date: 20141212
  Serious: Yes (Life-Threatening, Hospitalization, Disabling)
  Sender: FDA-Public Use
  Company Number: US-GLAXOSMITHKLINE-A1067526A

PATIENT
  Age: 74 Year
  Sex: Female

DRUGS (2)
  1. VOTRIENT [Suspect]
     Indication: SARCOMA
     Route: 065
  2. CHEMOTHERAPEUTICS NOS [Suspect]
     Indication: SARCOMA
     Route: 065

REACTIONS (8)
  - Posterior reversible encephalopathy syndrome [Recovered/Resolved]
  - Cerebral atrophy [Unknown]
  - Metastases to meninges [Unknown]
  - Blood brain barrier defect [Unknown]
  - Lung neoplasm malignant [Unknown]
  - White matter lesion [Unknown]
  - Confusional state [Unknown]
  - Nervous system disorder [Unknown]
